FAERS Safety Report 7770348-1 (Version None)
Quarter: 2011Q3

REPORT INFORMATION
  Report Type: 
  Country: None (occurrence: None)
  Receive Date: 20110922
  Receipt Date: 20110411
  Transmission Date: 20111222
  Serious: No
  Sender: FDA-Public Use
  Company Number: US-ASTRAZENECA-2010SE36062

PATIENT
  Age: 53 Year
  Sex: Female

DRUGS (8)
  1. SEROQUEL [Suspect]
     Route: 048
     Dates: start: 20100723
  2. LUNESTA [Concomitant]
     Indication: SLEEP DISORDER
  3. NEURONTIN [Concomitant]
  4. SEROQUEL [Suspect]
     Indication: SCHIZOPHRENIA
     Route: 048
     Dates: start: 20080101, end: 20100722
  5. XANAX [Concomitant]
  6. PERCOCET [Concomitant]
     Indication: BACK PAIN
  7. SEROQUEL [Suspect]
     Indication: DEPRESSION
     Route: 048
     Dates: start: 20080101, end: 20100722
  8. SEROQUEL [Suspect]
     Route: 048
     Dates: start: 20100723

REACTIONS (4)
  - MALAISE [None]
  - DRUG PRESCRIBING ERROR [None]
  - DEPRESSED MOOD [None]
  - FEELING ABNORMAL [None]
